FAERS Safety Report 8793118 (Version 7)
Quarter: 2012Q4

REPORT INFORMATION
  Report Type: 
  Country: US (occurrence: US)
  Receive Date: 20120917
  Receipt Date: 20121107
  Transmission Date: 20130627
  Serious: No
  Sender: FDA-Public Use
  Company Number: US-VERTEX PHARMACEUTICAL INC.-2012-020903

PATIENT
  Age: 49 None
  Sex: Female
  Weight: 102 kg

DRUGS (6)
  1. INCIVEK [Suspect]
     Indication: HEPATITIS C
     Dosage: 750 mg, tid
     Route: 048
     Dates: start: 20120905
  2. RIBAVIRIN [Suspect]
     Indication: HEPATITIS C
     Dosage: 3 tabs in am + 2 in pm, qd
     Route: 048
     Dates: start: 20120905
  3. PEGASYS [Suspect]
     Indication: HEPATITIS C
     Dosage: 180 ?g, qw
     Route: 058
     Dates: start: 20120907
  4. PEGASYS [Suspect]
     Dosage: 135 ?g, qw
     Route: 058
     Dates: start: 20121005
  5. METFORMIN [Concomitant]
     Indication: DIABETES MELLITUS
     Dosage: 2000 mg, qd
     Route: 048
  6. MEDICINE FOR HYPERTENSION [Concomitant]
     Indication: HYPERTENSION

REACTIONS (12)
  - Drug dose omission [Recovered/Resolved]
  - Vulvovaginal rash [Recovered/Resolved]
  - Vulvovaginal dryness [Not Recovered/Not Resolved]
  - Dry skin [Not Recovered/Not Resolved]
  - Decreased appetite [Not Recovered/Not Resolved]
  - Fatigue [Recovered/Resolved]
  - Rash macular [Recovered/Resolved]
  - Rash [Unknown]
  - Pruritus [Not Recovered/Not Resolved]
  - Anal pruritus [Not Recovered/Not Resolved]
  - Frequent bowel movements [Not Recovered/Not Resolved]
  - Vomiting [Recovered/Resolved]
